FAERS Safety Report 12614054 (Version 2)
Quarter: 2017Q3

REPORT INFORMATION
  Report Type: Spontaneous
  Country: US (occurrence: US)
  Receive Date: 20160802
  Receipt Date: 20170807
  Transmission Date: 20171127
  Serious: No
  Sender: FDA-Public Use
  Company Number: US-PFIZER INC-2016369363

PATIENT
  Age: 77 Year
  Sex: Female

DRUGS (15)
  1. IBUPROFEN. [Suspect]
     Active Substance: IBUPROFEN
     Dosage: UNK
  2. TORADOL [Suspect]
     Active Substance: KETOROLAC TROMETHAMINE
     Dosage: UNK
  3. TRYPTAN [Suspect]
     Active Substance: TRYPTOPHAN
     Dosage: UNK
  4. PRENATAL [Suspect]
     Active Substance: VITAMINS
     Dosage: UNK
  5. TYLENOL 8HR [Suspect]
     Active Substance: ACETAMINOPHEN
     Dosage: UNK
  6. PENICILLAMINE [Suspect]
     Active Substance: PENICILLAMINE
     Dosage: UNK
  7. SULFASALAZINE. [Suspect]
     Active Substance: SULFASALAZINE
     Dosage: UNK
  8. BIAXIN [Suspect]
     Active Substance: CLARITHROMYCIN
     Dosage: UNK
  9. AUGMENTIN [Suspect]
     Active Substance: AMOXICILLIN\CLAVULANATE POTASSIUM
     Dosage: UNK
  10. LISINOPRIL. [Suspect]
     Active Substance: LISINOPRIL
     Dosage: UNK
  11. TYLENOL [Suspect]
     Active Substance: ACETAMINOPHEN
     Dosage: UNK
  12. POLARAMINE [Suspect]
     Active Substance: DEXCHLORPHENIRAMINE MALEATE
     Dosage: UNK
  13. PHENOTHRIN [Suspect]
     Active Substance: PHENOTHRIN
     Dosage: UNK
  14. PLAQUENIL [Suspect]
     Active Substance: HYDROXYCHLOROQUINE SULFATE
     Dosage: UNK
  15. RUMEX ACETOSA LEAF. [Suspect]
     Active Substance: RUMEX ACETOSA LEAF
     Dosage: UNK

REACTIONS (1)
  - Drug hypersensitivity [Not Recovered/Not Resolved]
